FAERS Safety Report 5428978-8 (Version None)
Quarter: 2007Q3

REPORT INFORMATION
  Report Type: 
  Country: None (occurrence: None)
  Receive Date: 20070829
  Receipt Date: 20070424
  Transmission Date: 20080115
  Serious: No
  Sender: FDA-Public Use
  Company Number: A0648918A

PATIENT
  Sex: Female

DRUGS (1)
  1. ACYCLOVIR [Suspect]
     Route: 065

REACTIONS (2)
  - DRUG INEFFECTIVE [None]
  - HERPES ZOSTER [None]
